FAERS Safety Report 6835762-7 (Version None)
Quarter: 2010Q3

REPORT INFORMATION
  Report Type: 
  Country: None (occurrence: None)
  Receive Date: 20100712
  Receipt Date: 20100712
  Transmission Date: 20110219
  Serious: No
  Sender: FDA-Public Use
  Company Number: None

PATIENT
  Age: 79 Year
  Sex: Female
  Weight: 74.8435 kg

DRUGS (2)
  1. CALCIUM CITRATE [Suspect]
     Indication: OSTEOPOROSIS
     Dosage: 1 OR 2     2 TIMES DAILY PO
     Route: 048
  2. CITRICAL [Suspect]

REACTIONS (2)
  - MEDICATION ERROR [None]
  - PRODUCT LABEL ISSUE [None]
